FAERS Safety Report 6413214-6 (Version None)
Quarter: 2009Q4

REPORT INFORMATION
  Report Type: 
  Country: None (occurrence: None)
  Receive Date: 20091026
  Receipt Date: 20091015
  Transmission Date: 20100525
  Serious: Yes (Other)
  Sender: FDA-Public Use
  Company Number: PHHY2009JP38533

PATIENT
  Sex: Female

DRUGS (1)
  1. ZADITEN [Suspect]
     Indication: RHINITIS ALLERGIC
     Dosage: UNK
     Route: 048

REACTIONS (1)
  - LOSS OF CONSCIOUSNESS [None]
